FAERS Safety Report 18846199 (Version 2)
Quarter: 2021Q1

REPORT INFORMATION
  Report Type: Other
  Country: FR (occurrence: FR)
  Receive Date: 20210204
  Receipt Date: 20210222
  Transmission Date: 20210419
  Serious: Yes (Other)
  Sender: FDA-Public Use
  Company Number: FR-ROCHE-2761523

PATIENT

DRUGS (4)
  1. ETOPOSIDE. [Suspect]
     Active Substance: ETOPOSIDE
     Indication: B-CELL LYMPHOMA
     Dosage: DAYS 1 TO 3
     Route: 065
  2. RITUXIMAB. [Suspect]
     Active Substance: RITUXIMAB
     Indication: B-CELL LYMPHOMA
     Dosage: ON DAY 1
     Route: 042
  3. DEXAMETHASONE. [Suspect]
     Active Substance: DEXAMETHASONE
     Indication: B-CELL LYMPHOMA
     Dosage: DAY 1 TO 4
     Route: 065
  4. CYTARABINE. [Suspect]
     Active Substance: CYTARABINE
     Indication: B-CELL LYMPHOMA
     Dosage: DAYS 1 AND 2
     Route: 042

REACTIONS (18)
  - Left ventricular dysfunction [Unknown]
  - Enterocolitis [Unknown]
  - Stomatitis [Unknown]
  - Nausea [Unknown]
  - Sepsis [Unknown]
  - Diarrhoea [Unknown]
  - Anaemia [Unknown]
  - Vomiting [Unknown]
  - Constipation [Unknown]
  - Gastrointestinal haemorrhage [Unknown]
  - Dental caries [Unknown]
  - Fatigue [Unknown]
  - Neutropenia [Unknown]
  - Pericardial effusion [Unknown]
  - Pleural effusion [Unknown]
  - Thrombocytopenia [Unknown]
  - Febrile neutropenia [Unknown]
  - Embolism [Unknown]
